FAERS Safety Report 25258743 (Version 1)
Quarter: 2025Q2

REPORT INFORMATION
  Report Type: Spontaneous
  Country: US (occurrence: US)
  Receive Date: 20250501
  Receipt Date: 20250501
  Transmission Date: 20250716
  Serious: No
  Sender: UNITED EXCHANGE
  Company Number: US-United Exchange Corporation-2175937

PATIENT
  Sex: Female

DRUGS (1)
  1. CVS MEDICATED HEAT [Suspect]
     Active Substance: CAPSICUM
     Indication: Pain
     Dates: start: 20250308, end: 20250308

REACTIONS (2)
  - Thermal burn [Unknown]
  - Rash [Unknown]

NARRATIVE: CASE EVENT DATE: 20250318
